FAERS Safety Report 14079697 (Version 1)
Quarter: 2017Q4

REPORT INFORMATION
  Report Type: Spontaneous
  Country: US (occurrence: US)
  Receive Date: 20171012
  Receipt Date: 20171012
  Transmission Date: 20180321
  Serious: Yes (Hospitalization, Other)
  Sender: FDA-Public Use
  Company Number: US-PFIZER INC-2017432690

PATIENT
  Age: 35 Year
  Sex: Female

DRUGS (3)
  1. COUMADIN [Suspect]
     Active Substance: WARFARIN SODIUM
     Dosage: UNK
  2. XARELTO [Suspect]
     Active Substance: RIVAROXABAN
     Dosage: UNK
  3. LYRICA [Suspect]
     Active Substance: PREGABALIN
     Dosage: 100 MG, UNK

REACTIONS (2)
  - Haemoglobin decreased [Unknown]
  - Haemorrhage [Unknown]
